FAERS Safety Report 12629970 (Version 1)
Quarter: 2016Q3

REPORT INFORMATION
  Report Type: Spontaneous
  Country: GB (occurrence: GB)
  Receive Date: 20160808
  Receipt Date: 20160808
  Transmission Date: 20161109
  Serious: Yes (Hospitalization)
  Sender: FDA-Public Use
  Company Number: GB-PFIZER INC-2016324062

PATIENT
  Age: 32 Year
  Sex: Female
  Weight: 65 kg

DRUGS (1)
  1. HYPOVASE [Suspect]
     Active Substance: PRAZOSIN HYDROCHLORIDE
     Dosage: 7 MG, DAILY (3 MG IN THE MORNING, 4 MG IN THE NIGHT)
     Route: 048
     Dates: start: 20160613, end: 20160614

REACTIONS (2)
  - Somnolence [Not Recovered/Not Resolved]
  - Coordination abnormal [Not Recovered/Not Resolved]

NARRATIVE: CASE EVENT DATE: 20160613
